FAERS Safety Report 18204120 (Version 5)
Quarter: 2020Q4

REPORT INFORMATION
  Report Type: Report from Study
  Country: DE (occurrence: DE)
  Receive Date: 20200827
  Receipt Date: 20201013
  Transmission Date: 20210113
  Serious: Yes (Hospitalization, Other)
  Sender: FDA-Public Use
  Company Number: DE-BRISTOL-MYERS SQUIBB COMPANY-BMS-2020-067813

PATIENT
  Age: 71 Year
  Sex: Male
  Weight: 78 kg

DRUGS (2)
  1. IPILIMUMAB [Suspect]
     Active Substance: IPILIMUMAB
     Indication: MALIGNANT MELANOMA
     Dosage: 234 MILLIGRAM, Q3WK
     Route: 065
     Dates: start: 20190703, end: 20190704
  2. NIVOLUMAB [Suspect]
     Active Substance: NIVOLUMAB
     Indication: MALIGNANT MELANOMA
     Dosage: 78 MILLIGRAM, Q3WK
     Route: 042
     Dates: start: 20190703, end: 20190704

REACTIONS (6)
  - Haemolysis [Recovering/Resolving]
  - Atrial fibrillation [Recovering/Resolving]
  - Thrombotic thrombocytopenic purpura [Recovering/Resolving]
  - Lymphoedema [Recovering/Resolving]
  - Erysipelas [Recovered/Resolved]
  - Neutrophil count increased [Recovered/Resolved]

NARRATIVE: CASE EVENT DATE: 20190803
